FAERS Safety Report 4303404-0 (Version None)
Quarter: 2004Q1

REPORT INFORMATION
  Report Type: 
  Country: None (occurrence: None)
  Receive Date: 20040220
  Receipt Date: 20040210
  Transmission Date: 20041129
  Serious: Yes (Hospitalization)
  Sender: FDA-Public Use
  Company Number: HQWYE963712FEB04

PATIENT
  Age: 38 Year
  Sex: Male

DRUGS (11)
  1. RAPAMUNE [Suspect]
     Indication: LUNG TRANSPLANT
     Dosage: ORAL
     Route: 048
     Dates: start: 20040205
  2. FUROSEMIDE [Concomitant]
  3. AMLODIPINE [Concomitant]
  4. METOCLOPRAMIDE [Concomitant]
  5. METOPROLOL (METOPROLOL) [Concomitant]
  6. MYCOPHENOLAET MOFETIL (MYCOPHENOLATE MOFETIL) [Concomitant]
  7. NYSTATIN [Concomitant]
  8. OMEPRAZOLE [Concomitant]
  9. PREDNISONE [Concomitant]
  10. EFFEXOR [Concomitant]
  11. ZOPICLONE (ZOPICLONE) [Concomitant]

REACTIONS (1)
  - RENAL FAILURE ACUTE [None]
